FAERS Safety Report 14208475 (Version 3)
Quarter: 2018Q1

REPORT INFORMATION
  Report Type: Spontaneous
  Country: JP (occurrence: JP)
  Receive Date: 20171121
  Receipt Date: 20180130
  Transmission Date: 20180508
  Serious: Yes (Hospitalization)
  Sender: FDA-Public Use
  Company Number: JP-NAPPMUNDI-GBR-2017-0050701

PATIENT
  Age: 25 Year
  Sex: Male

DRUGS (3)
  1. ENDOXAN                            /00021101/ [Suspect]
     Active Substance: CYCLOPHOSPHAMIDE
     Indication: SYNOVIAL SARCOMA
     Dosage: 1100 MG, DAILY (750 MG/M2 1100 MG/DAY [100 MG ONCE DAILY])
     Route: 065
     Dates: start: 20171103, end: 20171104
  2. MS CONTIN [Suspect]
     Active Substance: MORPHINE SULFATE
     Indication: NEOPLASM MALIGNANT
     Dosage: 40 MG, BID
     Route: 048
     Dates: start: 20171102
  3. SODIUM CHLORIDE. [Concomitant]
     Active Substance: SODIUM CHLORIDE
     Indication: HYPONATRAEMIA
     Dosage: 40 ML, DAILY (REPORTED ALSO AS 80ML/H)
     Route: 042
     Dates: start: 20171103

REACTIONS (4)
  - Constipation [Unknown]
  - Diarrhoea [Unknown]
  - Infection [Unknown]
  - Cytokine release syndrome [Recovered/Resolved]

NARRATIVE: CASE EVENT DATE: 20171102
